FAERS Safety Report 15285852 (Version 1)
Quarter: 2018Q3

REPORT INFORMATION
  Report Type: Spontaneous
  Country: US (occurrence: US)
  Receive Date: 20180816
  Receipt Date: 20180816
  Transmission Date: 20181010
  Serious: Yes (Death, Hospitalization)
  Sender: FDA-Public Use
  Company Number: US-DSJP-DSU-2018-136073

PATIENT

DRUGS (3)
  1. OXYCODONE [Suspect]
     Active Substance: OXYCODONE
     Indication: SUBSTANCE USE
     Dosage: UNK
     Route: 048
     Dates: start: 2018
  2. HEROIN [Suspect]
     Active Substance: DIAMORPHINE
     Indication: SUBSTANCE USE
     Dosage: UNK
     Route: 048
     Dates: start: 2018
  3. MORPHINE SULFATE. [Suspect]
     Active Substance: MORPHINE SULFATE
     Indication: SUBSTANCE USE
     Dosage: UNK
     Route: 048
     Dates: start: 2018

REACTIONS (2)
  - Drug abuse [Fatal]
  - Toxic leukoencephalopathy [Fatal]

NARRATIVE: CASE EVENT DATE: 2018
